FAERS Safety Report 18278578 (Version 1)
Quarter: 2020Q3

REPORT INFORMATION
  Report Type: Spontaneous
  Country: US (occurrence: US)
  Receive Date: 20200917
  Receipt Date: 20200917
  Transmission Date: 20201103
  Serious: No
  Sender: FDA-Public Use
  Company Number: None

PATIENT
  Age: 50 Year
  Sex: Female
  Weight: 82.8 kg

DRUGS (1)
  1. NATURE?THROID [Suspect]
     Active Substance: THYROID, PORCINE
     Indication: AUTOIMMUNE THYROIDITIS
     Dosage: ?          QUANTITY:1 TABLET(S);?
     Route: 048
     Dates: start: 20200821, end: 20200917

REACTIONS (7)
  - Recalled product administered [None]
  - Depression [None]
  - Feeling abnormal [None]
  - Asthenia [None]
  - Decreased appetite [None]
  - Fatigue [None]
  - Anxiety [None]

NARRATIVE: CASE EVENT DATE: 20200821
